FAERS Safety Report 7576106-5 (Version None)
Quarter: 2011Q2

REPORT INFORMATION
  Report Type: 
  Country: None (occurrence: None)
  Receive Date: 20110623
  Receipt Date: 20110623
  Transmission Date: 20111010
  Serious: Yes (Other)
  Sender: FDA-Public Use
  Company Number: None

PATIENT
  Age: 69 Year
  Sex: Female
  Weight: 54.4316 kg

DRUGS (1)
  1. AMLODIPINE [Suspect]
     Indication: HYPERTENSION
     Dosage: 1 TABLET 2X DAY
     Dates: start: 20110525, end: 20110601

REACTIONS (4)
  - OLIGURIA [None]
  - DYSURIA [None]
  - OEDEMA PERIPHERAL [None]
  - ANURIA [None]
